FAERS Safety Report 14221623 (Version 1)
Quarter: 2017Q4

REPORT INFORMATION
  Report Type: Report from Study
  Country: US (occurrence: US)
  Receive Date: 20171124
  Receipt Date: 20171124
  Transmission Date: 20180321
  Serious: Yes (Hospitalization, Other)
  Sender: FDA-Public Use
  Company Number: PHEH2017US037306

PATIENT
  Sex: Female

DRUGS (1)
  1. TYKERB [Suspect]
     Active Substance: LAPATINIB DITOSYLATE
     Indication: PRODUCT USED FOR UNKNOWN INDICATION
     Dosage: UNK
     Route: 065

REACTIONS (8)
  - Lung neoplasm malignant [Unknown]
  - Gastric cancer [Unknown]
  - Dehydration [Unknown]
  - Coma [Unknown]
  - Hepatic cancer [Unknown]
  - Urinary tract infection [Unknown]
  - Breast cancer [Unknown]
  - Brain cancer metastatic [Unknown]
